FAERS Safety Report 4419878-0 (Version None)
Quarter: 2004Q3

REPORT INFORMATION
  Report Type: 
  Country: None (occurrence: None)
  Receive Date: 20040804
  Receipt Date: 20040709
  Transmission Date: 20050211
  Serious: Yes (Hospitalization)
  Sender: FDA-Public Use
  Company Number: US_0407104156

PATIENT
  Age: 28 Year
  Sex: Female

DRUGS (2)
  1. OLANZAPINE [Suspect]
     Indication: BIPOLAR DISORDER
     Dosage: 20 MG/DAY A FEW MONTHS
  2. LITHIUM [Concomitant]

REACTIONS (15)
  - AKATHISIA [None]
  - ANHEDONIA [None]
  - APATHY [None]
  - CRYING [None]
  - DECREASED INTEREST [None]
  - DEPRESSED MOOD [None]
  - FEELINGS OF WORTHLESSNESS [None]
  - HALLUCINATION, AUDITORY [None]
  - OBSESSIVE-COMPULSIVE DISORDER [None]
  - PERSECUTORY DELUSION [None]
  - PSYCHOMOTOR RETARDATION [None]
  - PSYCHOTIC DISORDER [None]
  - SUICIDAL IDEATION [None]
  - TENSION [None]
  - THINKING ABNORMAL [None]
